FAERS Safety Report 14340935 (Version 1)
Quarter: 2018Q1

REPORT INFORMATION
  Report Type: Spontaneous
  Country: GB (occurrence: GB)
  Receive Date: 20180102
  Receipt Date: 20180102
  Transmission Date: 20180509
  Serious: Yes (Death)
  Sender: FDA-Public Use
  Company Number: GB-INSYS THERAPEUTICS, INC-INS201712-000780

PATIENT
  Age: 41 Year
  Sex: Male

DRUGS (13)
  1. NORDIAZEPAM [Suspect]
     Active Substance: NORDAZEPAM
  2. TEMAZEPAM. [Suspect]
     Active Substance: TEMAZEPAM
  3. FENTANYL. [Suspect]
     Active Substance: FENTANYL
     Indication: PRODUCT USED FOR UNKNOWN INDICATION
  4. CODEINE [Suspect]
     Active Substance: CODEINE
  5. PARACETAMOL [Suspect]
     Active Substance: ACETAMINOPHEN
  6. METHADONE [Suspect]
     Active Substance: METHADONE HYDROCHLORIDE
  7. NORFENTANYL [Suspect]
     Active Substance: NORFENTANYL
  8. DIAZEPAM. [Suspect]
     Active Substance: DIAZEPAM
  9. 2-ETHYLIDENE-1, 5-DIMETHYL-3, 3-DIPHENYLPYRROLIDINE (EDDP) [Suspect]
     Active Substance: METHADONE HYDROCHLORIDE
  10. BUTYRYLFENTANYL [Suspect]
     Active Substance: BUTYRFENTANYL
  11. CARFENTANIL [Suspect]
     Active Substance: CARFENTANIL
  12. OXAZEPAM. [Suspect]
     Active Substance: OXAZEPAM
  13. PREGABALIN. [Suspect]
     Active Substance: PREGABALIN

REACTIONS (2)
  - Toxicity to various agents [Fatal]
  - Depressed level of consciousness [Fatal]

NARRATIVE: CASE EVENT DATE: 2017
